FAERS Safety Report 12376650 (Version 2)
Quarter: 2016Q2

REPORT INFORMATION
  Report Type: Report from Study
  Country: US (occurrence: US)
  Receive Date: 20160517
  Receipt Date: 20160517
  Transmission Date: 20160815
  Serious: No
  Sender: FDA-Public Use
  Company Number: US-MALLINCKRODT-T201502610

PATIENT
  Age: 43 Year
  Sex: Female

DRUGS (1)
  1. REPOSITORY CORTICOTROPIN INJECTION [Suspect]
     Active Substance: CORTICOTROPIN
     Indication: SYSTEMIC LUPUS ERYTHEMATOSUS
     Dosage: 40 UNITS TWICE PER WEEK
     Route: 058
     Dates: start: 20150416

REACTIONS (9)
  - Malaise [Not Recovered/Not Resolved]
  - Fatigue [Unknown]
  - Diarrhoea [Recovering/Resolving]
  - Injection site pain [Unknown]
  - Limb discomfort [Not Recovered/Not Resolved]
  - Gastric disorder [Not Recovered/Not Resolved]
  - Nasopharyngitis [Recovered/Resolved]
  - Influenza [Not Recovered/Not Resolved]
  - Abdominal pain upper [Recovering/Resolving]

NARRATIVE: CASE EVENT DATE: 20151026
